FAERS Safety Report 9684476 (Version 2)
Quarter: 2014Q1

REPORT INFORMATION
  Report Type: Spontaneous
  Country: ES (occurrence: ES)
  Receive Date: 20131112
  Receipt Date: 20140219
  Transmission Date: 20141002
  Serious: Yes (Death, Other)
  Sender: FDA-Public Use
  Company Number: PHHY2013ES126382

PATIENT
  Age: 75 Year
  Sex: Male

DRUGS (5)
  1. FLURAZEPAM [Suspect]
  2. DIAZEPAM [Suspect]
  3. VENLAFAXINE [Suspect]
  4. TRAMADOL [Suspect]
  5. CITALOPRAM [Suspect]

REACTIONS (6)
  - Completed suicide [Fatal]
  - Toxicity to various agents [Fatal]
  - Pulmonary oedema [Unknown]
  - Arteriosclerosis coronary artery [Unknown]
  - Myocardial infarction [Unknown]
  - Gastric haemorrhage [Unknown]
